FAERS Safety Report 7597191-0 (Version None)
Quarter: 2011Q3

REPORT INFORMATION
  Report Type: 
  Country: None (occurrence: None)
  Receive Date: 20110708
  Receipt Date: 20100812
  Transmission Date: 20111222
  Serious: No
  Sender: FDA-Public Use
  Company Number: US-GLAXOSMITHKLINE-A0875556A

PATIENT
  Age: 78 Year
  Sex: Female

DRUGS (8)
  1. ACTOS [Concomitant]
  2. PROTONIX [Concomitant]
  3. LORAZEPAM [Concomitant]
  4. ASCORBIC ACID [Concomitant]
  5. CENTRUM SILVER [Concomitant]
  6. CALCIUM + VITAMIN D [Concomitant]
  7. FLOVENT [Suspect]
     Indication: ASTHMA
     Dosage: 2PUFF TWICE PER DAY
     Route: 055
     Dates: start: 20100701
  8. ATROVENT [Concomitant]

REACTIONS (2)
  - DYSPHONIA [None]
  - THROAT IRRITATION [None]
